FAERS Safety Report 4645137-7 (Version None)
Quarter: 2005Q2

REPORT INFORMATION
  Report Type: 
  Country: None (occurrence: None)
  Receive Date: 20050422
  Receipt Date: 20050414
  Transmission Date: 20051028
  Serious: Yes (Hospitalization, Other)
  Sender: FDA-Public Use
  Company Number: HQWYE077618APR05

PATIENT
  Age: 66 Year
  Sex: Male

DRUGS (2)
  1. MINOCYCLINE HCL [Suspect]
     Indication: INFECTION PROPHYLAXIS
     Dosage: 200 MG DAILY ORAL
     Route: 048
     Dates: start: 20050310, end: 20050328
  2. FLOMOX (CEFCAPENE PIVOXIL HYDROCHLORIDE, ) [Suspect]
     Indication: INFECTION PROPHYLAXIS

REACTIONS (5)
  - DYSPNOEA [None]
  - GENERALISED OEDEMA [None]
  - LUNG DISORDER [None]
  - PANCREATITIS ACUTE [None]
  - RASH [None]
